FAERS Safety Report 12726882 (Version 4)
Quarter: 2016Q4

REPORT INFORMATION
  Report Type: Spontaneous
  Country: PL (occurrence: PL)
  Receive Date: 20160908
  Receipt Date: 20161116
  Transmission Date: 20170207
  Serious: Yes (Hospitalization)
  Sender: FDA-Public Use
  Company Number: PL-BEH-2016073263

PATIENT
  Age: 7 Year
  Sex: Female

DRUGS (4)
  1. SANDOGLOBULIN P [Suspect]
     Active Substance: HUMAN IMMUNOGLOBULIN G
     Indication: ACUTE MYOCARDIAL INFARCTION
     Dosage: 6 G, UNK
     Route: 042
     Dates: start: 20160905, end: 20160905
  2. PARACETAMOL [Concomitant]
     Active Substance: ACETAMINOPHEN
     Dosage: 500 MG, UNK, AT HOME
     Route: 065
     Dates: start: 201609
  3. GLUCOSE + SODIUM CHLORIDE [Concomitant]
     Dosage: 1 DF, OD
     Route: 065
     Dates: start: 20160902
  4. BETALOC                            /00376902/ [Concomitant]
     Active Substance: METOPROLOL TARTRATE
     Dosage: 12.5 MG, TOT
     Route: 065

REACTIONS (8)
  - Chills [Recovered/Resolved]
  - Rash pruritic [Recovered/Resolved]
  - Anaphylactic shock [Recovered/Resolved]
  - Cold sweat [Recovered/Resolved]
  - Blood pressure decreased [Recovered/Resolved]
  - Hyperhidrosis [Recovered/Resolved]
  - Urticaria [Recovered/Resolved]
  - Pyrexia [Recovered/Resolved]

NARRATIVE: CASE EVENT DATE: 20160905
